FAERS Safety Report 10461737 (Version 3)
Quarter: 2016Q3

REPORT INFORMATION
  Report Type: Spontaneous
  Country: JP (occurrence: JP)
  Receive Date: 20140918
  Receipt Date: 20160902
  Transmission Date: 20161109
  Serious: Yes (Hospitalization, Disabling, Other)
  Sender: FDA-Public Use
  Company Number: JP-SA-2014SA125006

PATIENT
  Age: 66 Year
  Sex: Male

DRUGS (9)
  1. RENAGEL [Suspect]
     Active Substance: SEVELAMER HYDROCHLORIDE
     Indication: HYPERPHOSPHATAEMIA
     Route: 048
  2. LASIX [Concomitant]
     Active Substance: FUROSEMIDE
     Route: 048
  3. KAYEXALATE [Suspect]
     Active Substance: SODIUM POLYSTYRENE SULFONATE
     Indication: HYPERKALAEMIA
     Route: 065
  4. CALTAN [Concomitant]
     Active Substance: CALCIUM CARBONATE
     Route: 048
  5. CALCIUM POLYSTYRENE SULFONATE [Concomitant]
     Active Substance: CALCIUM POLYSTYRENE SULFONATE
     Route: 048
  6. PERSANTINE [Concomitant]
     Active Substance: DIPYRIDAMOLE
     Route: 048
  7. ZYLORIC [Concomitant]
     Active Substance: ALLOPURINOL
     Route: 048
  8. PROTECADIN [Concomitant]
     Active Substance: LAFUTIDINE
     Route: 048
  9. CALFINA [Concomitant]
     Active Substance: ALFACALCIDOL
     Route: 048

REACTIONS (7)
  - Coma scale abnormal [Unknown]
  - Abdominal pain [Unknown]
  - Abdominal distension [Unknown]
  - Abdominal rigidity [Unknown]
  - Large intestine perforation [Recovered/Resolved with Sequelae]
  - Ascites [Unknown]
  - Tenderness [Unknown]

NARRATIVE: CASE EVENT DATE: 2014
